FAERS Safety Report 25254506 (Version 1)
Quarter: 2025Q2

REPORT INFORMATION
  Report Type: Spontaneous
  Country: US (occurrence: US)
  Receive Date: 20250430
  Receipt Date: 20250430
  Transmission Date: 20250716
  Serious: Yes (Hospitalization, Other)
  Sender: CHEPLAPHARM
  Company Number: US-ROCHE-2725226

PATIENT
  Age: 56 Year
  Sex: Male
  Weight: 68.04 kg

DRUGS (14)
  1. CLONAZEPAM [Suspect]
     Active Substance: CLONAZEPAM
     Indication: Anxiety
     Dosage: BEDTIME ;ONGOING: YES
     Route: 048
     Dates: start: 2010
  2. OCREVUS [Suspect]
     Active Substance: OCRELIZUMAB
     Indication: Relapsing multiple sclerosis
     Dosage: LAST DOSE 04/APR/2025
     Route: 042
     Dates: start: 2017
  3. ZOFRAN [Concomitant]
     Active Substance: ONDANSETRON HYDROCHLORIDE
     Indication: Nausea
     Route: 048
  4. TRILEPTAL [Concomitant]
     Active Substance: OXCARBAZEPINE
     Route: 048
     Dates: start: 202007
  5. PRANDIN (UNITED STATES) [Concomitant]
     Route: 048
  6. DEPAKOTE [Concomitant]
     Active Substance: DIVALPROEX SODIUM
     Route: 048
  7. CLARITIN [Concomitant]
     Active Substance: LORATADINE
     Route: 048
  8. NUCYNTA [Concomitant]
     Active Substance: TAPENTADOL HYDROCHLORIDE
     Indication: Pain
     Route: 048
     Dates: start: 202011
  9. BENADRYL [Concomitant]
     Active Substance: DIPHENHYDRAMINE HYDROCHLORIDE
     Route: 048
  10. CRANBERRY [Concomitant]
     Active Substance: CRANBERRY
     Route: 048
  11. FIBER THERAPY (CALCIUM POLYCARBOPHIL) [Concomitant]
     Active Substance: CALCIUM POLYCARBOPHIL
     Route: 048
  12. FLONASE [Concomitant]
     Active Substance: FLUTICASONE PROPIONATE
     Route: 045
  13. ROBAXIN [Concomitant]
     Active Substance: METHOCARBAMOL
  14. BOTOX [Concomitant]
     Active Substance: ONABOTULINUMTOXINA

REACTIONS (12)
  - Trigeminal neuralgia [Not Recovered/Not Resolved]
  - Migraine [Recovered/Resolved]
  - Type 2 diabetes mellitus [Not Recovered/Not Resolved]
  - Gastric ulcer [Recovered/Resolved]
  - Hypertension [Recovered/Resolved]
  - Headache [Recovering/Resolving]
  - Dizziness [Recovered/Resolved]
  - Asthenia [Recovered/Resolved]
  - Glaucoma [Not Recovered/Not Resolved]
  - Blood triglycerides increased [Not Recovered/Not Resolved]
  - Off label use [Unknown]
  - Immunoglobulins decreased [Unknown]

NARRATIVE: CASE EVENT DATE: 20250327
